FAERS Safety Report 7286520-3 (Version None)
Quarter: 2011Q1

REPORT INFORMATION
  Report Type: 
  Country: None (occurrence: None)
  Receive Date: 20110210
  Receipt Date: 20110125
  Transmission Date: 20110831
  Serious: Yes (Hospitalization, Other)
  Sender: FDA-Public Use
  Company Number: GB-PFIZER INC-2010145516

PATIENT
  Age: 60 Year
  Sex: Female

DRUGS (16)
  1. DOSULEPIN [Suspect]
     Indication: DEPRESSION
     Dosage: 50 MG, 1X/DAY
  2. SERTRALINE HYDROCHLORIDE [Suspect]
     Dosage: 150 MG, IN THE MORNING
  3. LYRICA [Suspect]
     Dosage: 100 MG IN THE MORNING, 50MG AT MIDDAY AND 50MG AT NIGHT
  4. LYRICA [Suspect]
     Dosage: 100 MG, 3X/DAY
     Dates: end: 20100913
  5. SIMVASTATIN [Suspect]
     Dosage: 20 MG, 1X/DAY AT NIGHT
  6. ACETYLSALICYLIC ACID [Suspect]
     Dosage: 75 MG, 1X/DAY
  7. LYRICA [Suspect]
     Dosage: 75 MG, 3X/DAY
     Dates: start: 20100701, end: 20100801
  8. CITALOPRAM [Suspect]
     Dosage: UNK
  9. SERTRALINE HYDROCHLORIDE [Suspect]
     Dosage: 100 MG, 1X/DAY
  10. ZOPICLONE [Suspect]
     Indication: SLEEP DISORDER
     Dosage: 3.75 MG, AT NIGHT
  11. SERTRALINE HYDROCHLORIDE [Suspect]
     Dosage: 100 MG, UNK
  12. PROMETHAZINE [Suspect]
     Indication: ANXIETY
     Dosage: 50 MG, UNK
  13. PROMETHAZINE [Suspect]
     Indication: SLEEP DISORDER
  14. LYRICA [Suspect]
     Indication: GENERALISED ANXIETY DISORDER
     Dosage: 50 MG, 3X/DAY
     Dates: start: 20100501
  15. ATENOLOL [Suspect]
     Dosage: 25 MG, 1X/DAY
     Route: 048
  16. DIAZEPAM [Suspect]

REACTIONS (27)
  - URINARY TRACT INFECTION [None]
  - DIARRHOEA [None]
  - VOMITING [None]
  - WEIGHT DECREASED [None]
  - CONFUSIONAL STATE [None]
  - SYNCOPE [None]
  - PAIN [None]
  - NAUSEA [None]
  - PANIC ATTACK [None]
  - LETHARGY [None]
  - OVERDOSE [None]
  - SUICIDAL IDEATION [None]
  - DEPRESSION [None]
  - MUSCLE ATROPHY [None]
  - MUSCLE TWITCHING [None]
  - HYPERHIDROSIS [None]
  - AGGRESSION [None]
  - INSOMNIA [None]
  - MALAISE [None]
  - ORAL DISCOMFORT [None]
  - ANXIETY [None]
  - HYPOCHONDRIASIS [None]
  - DECREASED APPETITE [None]
  - DIZZINESS [None]
  - MYALGIA [None]
  - ANAEMIA [None]
  - TREMOR [None]
